FAERS Safety Report 4299563-9 (Version None)
Quarter: 2004Q1

REPORT INFORMATION
  Report Type: 
  Country: None (occurrence: None)
  Receive Date: 20040217
  Receipt Date: 20040130
  Transmission Date: 20041129
  Serious: Yes (Hospitalization, Other)
  Sender: FDA-Public Use
  Company Number: 2003126175

PATIENT
  Sex: Male
  Weight: 81.6475 kg

DRUGS (8)
  1. LIPITOR [Suspect]
     Indication: BLOOD CHOLESTEROL INCREASED
     Dosage: 10 MG DAILY, ORAL
     Route: 048
     Dates: start: 19980101
  2. TRAMADOL HCL [Concomitant]
  3. MINOCYCLINE HCL [Concomitant]
  4. LEVOTHYROXINE SODIUM [Concomitant]
  5. ACETYLSALICYLIC ACID SRT [Concomitant]
  6. GABAPENTIN (GABAPENTN) [Concomitant]
  7. CYANOCOBALAMIN (CYANOCOBALAMIN) [Concomitant]
  8. MULTIVITAMIN [Concomitant]

REACTIONS (4)
  - ANGIOPLASTY [None]
  - BLOOD CHOLESTEROL INCREASED [None]
  - DRUG EFFECT DECREASED [None]
  - TRIPLE VESSEL BYPASS GRAFT [None]
